FAERS Safety Report 8943554 (Version 4)
Quarter: 2014Q2

REPORT INFORMATION
  Report Type: Report from Study
  Country: CA (occurrence: CA)
  Receive Date: 20121204
  Receipt Date: 20140424
  Transmission Date: 20141212
  Serious: Yes (Hospitalization, Other)
  Sender: FDA-Public Use
  Company Number: CA-JNJFOC-20121112390

PATIENT
  Sex: Female
  Weight: 48.54 kg

DRUGS (11)
  1. REMICADE [Suspect]
     Indication: CROHN^S DISEASE
     Route: 042
  2. REMICADE [Suspect]
     Indication: CROHN^S DISEASE
     Route: 042
     Dates: start: 201302
  3. REMICADE [Suspect]
     Indication: CROHN^S DISEASE
     Route: 042
     Dates: start: 201105
  4. REMICADE [Suspect]
     Indication: CROHN^S DISEASE
     Route: 042
     Dates: start: 2012
  5. RANITIDINE [Concomitant]
     Route: 065
  6. CARBAMAZEPINE [Concomitant]
     Route: 065
  7. SYNTHROID [Concomitant]
     Route: 065
  8. ESTROGEN [Concomitant]
     Route: 065
  9. FORTEO [Concomitant]
     Indication: BONE DEVELOPMENT ABNORMAL
     Route: 065
  10. VITAMIN B12 [Concomitant]
     Route: 065
  11. VITAMIN D [Concomitant]
     Route: 065

REACTIONS (5)
  - Nephrolithiasis [Recovered/Resolved]
  - Crohn^s disease [Recovered/Resolved]
  - Intestinal obstruction [Unknown]
  - Dehydration [Unknown]
  - Malaise [Unknown]
